FAERS Safety Report 15362364 (Version 1)
Quarter: 2018Q3

REPORT INFORMATION
  Report Type: Spontaneous
  Country: GB (occurrence: GB)
  Receive Date: 20180907
  Receipt Date: 20180907
  Transmission Date: 20181010
  Serious: Yes (Other)
  Sender: FDA-Public Use
  Company Number: GB-MYLANLABS-2017M1082367

PATIENT
  Age: 68 Year
  Sex: Female

DRUGS (1)
  1. HYDROXYCHLOROQUINE [Suspect]
     Active Substance: HYDROXYCHLOROQUINE
     Indication: SJOGREN^S SYNDROME
     Dosage: UNK ( MORE THAN 1500 G ON VARYING DOSES OVER TIME 200?400MG DAILY)

REACTIONS (4)
  - Retinal toxicity [Unknown]
  - Off label use [Unknown]
  - Maculopathy [Unknown]
  - Visual field defect [Unknown]
